FAERS Safety Report 23107427 (Version 1)
Quarter: 2023Q4

REPORT INFORMATION
  Report Type: Spontaneous
  Country: IT (occurrence: IT)
  Receive Date: 20231026
  Receipt Date: 20231026
  Transmission Date: 20240110
  Serious: Yes (Hospitalization, Disabling)
  Sender: FDA-Public Use
  Company Number: IT-MINISAL02-949741

PATIENT
  Age: 49 Year
  Sex: Male
  Weight: 68 kg

DRUGS (4)
  1. BORTEZOMIB [Suspect]
     Active Substance: BORTEZOMIB
     Indication: Plasma cell myeloma
     Dosage: 1.3 MILLIGRAM/SQ. METER (1.3 MG/SQM DAYS 1, 4, 8, 11 FOR EACH CYCLE OF 28 DAYS (DARAVTD SCHEDULE IN
     Route: 058
     Dates: start: 20230519, end: 20230721
  2. DARATUMUMAB [Concomitant]
     Active Substance: DARATUMUMAB
     Indication: Plasma cell myeloma
     Dosage: 1800 MILLIGRAM (1800 MG SC EVERY WEEK FOR 9 WEEKS (THEN DISCONTINUED FOR NEUROPATHY, LAST ADMINISTRA
     Route: 058
     Dates: start: 20230519, end: 20230714
  3. DEXAMETHASONE [Concomitant]
     Active Substance: DEXAMETHASONE
     Indication: Plasma cell myeloma
     Dosage: 40 MILLIGRAM (40 MG 2 VV/WEEK AS PER DARAVTD PROTOCOL)
     Route: 048
     Dates: start: 20230519, end: 20230905
  4. Talidomid accord [Concomitant]
     Indication: Plasma cell myeloma
     Dosage: 100 MILLIGRAM, ONCE A DAY (100 MG/DAY. SUSPENDED FROM 29/6 TO 13/7 DUE TO SKIN RASH. RESUMED FROM 14
     Route: 048
     Dates: start: 20230519, end: 20230721

REACTIONS (1)
  - Mononeuropathy multiplex [Recovering/Resolving]

NARRATIVE: CASE EVENT DATE: 20230721
